FAERS Safety Report 5194079-X (Version None)
Quarter: 2006Q4

REPORT INFORMATION
  Report Type: 
  Country: None (occurrence: None)
  Receive Date: 20061226
  Receipt Date: 20061218
  Transmission Date: 20070319
  Serious: Yes (Life-Threatening, Hospitalization)
  Sender: FDA-Public Use
  Company Number: S06-USA-01633-01

PATIENT
  Age: 58 Year
  Sex: Male

DRUGS (8)
  1. LEXAPRO [Suspect]
     Indication: DEPRESSION
     Dosage: 10 MG QD PO
     Route: 048
     Dates: start: 20040101, end: 20060302
  2. LEXAPRO [Suspect]
     Indication: DEPRESSION
     Dosage: 20 MG ONCE PO
     Route: 048
     Dates: start: 20060303, end: 20060303
  3. LEXAPRO [Suspect]
     Indication: DEPRESSION
     Dosage: 10 MG QD PO
     Route: 048
     Dates: start: 20060304
  4. DOXEPIN HCL [Suspect]
     Indication: INSOMNIA
     Dosage: 2 TABLET ONCE PO
     Route: 048
     Dates: start: 20060303, end: 20060303
  5. REBIF [Suspect]
     Indication: MULTIPLE SCLEROSIS
     Dosage: 44 MCG TIW SC
     Route: 058
     Dates: start: 20051229, end: 20060301
  6. DILANTIN [Concomitant]
  7. AMBIEN [Concomitant]
  8. DEPAKOTE [Concomitant]

REACTIONS (10)
  - ANHEDONIA [None]
  - COMPLEX PARTIAL SEIZURES [None]
  - CONDITION AGGRAVATED [None]
  - DEPRESSION [None]
  - GRAND MAL CONVULSION [None]
  - INSOMNIA [None]
  - MEMORY IMPAIRMENT [None]
  - MOBILITY DECREASED [None]
  - SPEECH DISORDER [None]
  - VIRAL INFECTION [None]
